FAERS Safety Report 10143200 (Version 1)
Quarter: 2014Q2

REPORT INFORMATION
  Report Type: Spontaneous
  Country: US (occurrence: None)
  Receive Date: 20140429
  Receipt Date: 20140429
  Transmission Date: 20141212
  Serious: Yes (Disabling)
  Sender: FDA-Public Use
  Company Number: None

PATIENT
  Age: 7 Year
  Sex: Male
  Weight: 18.14 kg

DRUGS (1)
  1. INTUNIV [Suspect]
     Indication: ATTENTION DEFICIT/HYPERACTIVITY DISORDER
     Dosage: ONE PILL ONCE DAILY BY MOUTH.
     Dates: start: 20140311, end: 20140423

REACTIONS (3)
  - Tic [None]
  - Cough [None]
  - Eye movement disorder [None]
